FAERS Safety Report 10251988 (Version 1)
Quarter: 2014Q2

REPORT INFORMATION
  Report Type: Spontaneous
  Country: US (occurrence: US)
  Receive Date: 20140623
  Receipt Date: 20140623
  Transmission Date: 20141212
  Serious: Yes (Life-Threatening, Congenital Anomaly)
  Sender: FDA-Public Use
  Company Number: US-ELI_LILLY_AND_COMPANY-US201406006590

PATIENT
  Sex: 0

DRUGS (1)
  1. PROZAC [Suspect]
     Indication: PRODUCT USED FOR UNKNOWN INDICATION
     Dosage: UNK, UNKNOWN
     Route: 065

REACTIONS (3)
  - Transposition of the great vessels [Unknown]
  - Cardiac murmur [Unknown]
  - Foetal exposure during pregnancy [Recovered/Resolved]
